FAERS Safety Report 14334436 (Version 1)
Quarter: 2017Q4

REPORT INFORMATION
  Report Type: Spontaneous
  Country: US (occurrence: US)
  Receive Date: 20171228
  Receipt Date: 20171228
  Transmission Date: 20180321
  Serious: No
  Sender: FDA-Public Use
  Company Number: US-GLAXOSMITHKLINE-US2017200805

PATIENT
  Age: 95 Year
  Sex: Female

DRUGS (2)
  1. ERYTHROMYCIN. [Concomitant]
     Active Substance: ERYTHROMYCIN
     Dosage: UNK
  2. ADVAIR DISKUS [Suspect]
     Active Substance: FLUTICASONE PROPIONATE\SALMETEROL XINAFOATE
     Indication: DYSPNOEA
     Dosage: 1 PUFF(S), BID
     Dates: start: 20171219

REACTIONS (3)
  - Drug dose omission [Unknown]
  - Device use error [Unknown]
  - Drug ineffective [Not Recovered/Not Resolved]

NARRATIVE: CASE EVENT DATE: 20171220
